FAERS Safety Report 6466982-1 (Version None)
Quarter: 2009Q4

REPORT INFORMATION
  Report Type: 
  Country: None (occurrence: None)
  Receive Date: 20091202
  Receipt Date: 20091119
  Transmission Date: 20100525
  Serious: Yes (Life-Threatening, Other)
  Sender: FDA-Public Use
  Company Number: US-PFIZER INC-2009300353

PATIENT
  Age: 45 Year
  Sex: Male

DRUGS (1)
  1. BACITRACIN ZINC AND BACITRACIN [Suspect]
     Indication: TINEA PEDIS
     Route: 061

REACTIONS (1)
  - ANAPHYLACTIC REACTION [None]
